FAERS Safety Report 19652883 (Version 1)
Quarter: 2021Q3

REPORT INFORMATION
  Report Type: Spontaneous
  Country: MY (occurrence: MY)
  Receive Date: 20210803
  Receipt Date: 20210803
  Transmission Date: 20211014
  Serious: Yes (Death)
  Sender: FDA-Public Use
  Company Number: MY-GLAXOSMITHKLINE-MY2021GSK162723

PATIENT
  Age: 66 Year
  Sex: Male

DRUGS (3)
  1. ACICLOVIR [Suspect]
     Active Substance: ACYCLOVIR
     Indication: ENCEPHALITIS
     Dosage: 250 MG, QD
     Route: 042
  2. CIDOFOVIR. [Suspect]
     Active Substance: CIDOFOVIR
     Indication: ADENOVIRAL ENCEPHALITIS
     Dosage: UNK
     Route: 042
  3. CEFTRIAXONE. [Suspect]
     Active Substance: CEFTRIAXONE
     Indication: ENCEPHALITIS
     Dosage: 2 G, BID
     Route: 042

REACTIONS (2)
  - Wrong product administered [Unknown]
  - Condition aggravated [Fatal]
